FAERS Safety Report 10447655 (Version 1)
Quarter: 2014Q3

REPORT INFORMATION
  Report Type: Spontaneous
  Country: US (occurrence: None)
  Receive Date: 20140910
  Receipt Date: 20140910
  Transmission Date: 20150326
  Serious: No
  Sender: FDA-Public Use
  Company Number: None

PATIENT

DRUGS (1)
  1. ACETYLCYSTEINE. [Suspect]
     Active Substance: ACETYLCYSTEINE
     Dosage: STRENGTH:  20% (200 MG/ML)SIZE 4ML.
     Route: 048

REACTIONS (2)
  - Incorrect route of drug administration [None]
  - Product packaging confusion [None]
